FAERS Safety Report 7620373-6 (Version None)
Quarter: 2011Q3

REPORT INFORMATION
  Report Type: 
  Country: None (occurrence: None)
  Receive Date: 20110718
  Receipt Date: 20110718
  Transmission Date: 20111222
  Serious: Yes (Other)
  Sender: FDA-Public Use
  Company Number: None

PATIENT
  Age: 50 Year
  Sex: Female
  Weight: 55.791 kg

DRUGS (2)
  1. LEVOFLOXACIN [Suspect]
     Indication: BRONCHITIS
     Dosage: TAKE ONE TABLET BY MOUTH
     Dates: start: 20110709, end: 20110711
  2. LEVOFLOXACIN [Suspect]
     Indication: PYREXIA
     Dosage: TAKE ONE TABLET BY MOUTH
     Dates: start: 20110709, end: 20110711

REACTIONS (3)
  - RASH [None]
  - PARAESTHESIA [None]
  - MUSCULOSKELETAL STIFFNESS [None]
